FAERS Safety Report 21918637 (Version 2)
Quarter: 2023Q1

REPORT INFORMATION
  Report Type: Report from Study
  Country: FR (occurrence: None)
  Receive Date: 20230127
  Receipt Date: 20230309
  Transmission Date: 20230418
  Serious: Yes (Other)
  Sender: FDA-Public Use
  Company Number: FR-ROCHE-3266428

PATIENT
  Age: 75 Year
  Sex: Female
  Weight: 46 kg

DRUGS (21)
  1. TOCILIZUMAB [Suspect]
     Active Substance: TOCILIZUMAB
     Indication: Giant cell arteritis
     Route: 058
     Dates: start: 20220613, end: 20220705
  2. TOCILIZUMAB [Suspect]
     Active Substance: TOCILIZUMAB
     Route: 058
     Dates: start: 20220804
  3. PREDNISONE [Concomitant]
     Active Substance: PREDNISONE
     Dates: start: 20220711, end: 20220717
  4. PREDNISONE [Concomitant]
     Active Substance: PREDNISONE
     Dates: start: 20220718, end: 20220731
  5. PREDNISONE [Concomitant]
     Active Substance: PREDNISONE
     Dates: start: 20220801, end: 20220814
  6. PREDNISONE [Concomitant]
     Active Substance: PREDNISONE
     Dates: start: 20220814, end: 20220818
  7. PREDNISONE [Concomitant]
     Active Substance: PREDNISONE
     Dates: start: 20220829, end: 20220925
  8. PREDNISONE [Concomitant]
     Active Substance: PREDNISONE
     Dates: start: 20220926
  9. KARDEGIC [Concomitant]
     Active Substance: ASPIRIN DL-LYSINE
     Dosage: ONE SACHET IN THE MORNING
  10. LANSOPRAZOLE [Concomitant]
     Active Substance: LANSOPRAZOLE
     Dosage: ONE TABLET IN THE EVENING
  11. ATORVASTATIN [Concomitant]
     Active Substance: ATORVASTATIN
  12. AMLODIPINE [Concomitant]
     Active Substance: AMLODIPINE BESYLATE
     Dosage: ONE TABLET IN THE MORNING
  13. RAMIPRIL [Concomitant]
     Active Substance: RAMIPRIL
     Dosage: ONE TABLET IN THE MORNING
  14. MELATONIN [Concomitant]
     Active Substance: MELATONIN
     Dosage: ONE TABLET IN THE EVENING
  15. BROMAZEPAM [Concomitant]
     Active Substance: BROMAZEPAM
     Dosage: 1/4 IF NEEDED AT BED TIME
  16. CACIT [CALCIUM CARBONATE;COLECALCIFEROL] [Concomitant]
  17. ADROVANCE [Concomitant]
     Active Substance: ALENDRONATE SODIUM\CHOLECALCIFEROL
     Dates: start: 2005
  18. FOSAMAX [Concomitant]
     Active Substance: ALENDRONATE SODIUM
     Dates: start: 2015
  19. FOSAVANCE [Concomitant]
     Active Substance: ALENDRONATE SODIUM\CHOLECALCIFEROL
     Dates: start: 2005
  20. PROLIA [Concomitant]
     Active Substance: DENOSUMAB
     Dates: start: 2019
  21. CHOLECALCIFEROL [Concomitant]
     Active Substance: CHOLECALCIFEROL
     Dosage: 1 AMPOULE/ 3 MONTHS

REACTIONS (2)
  - Hepatic cytolysis [Recovered/Resolved]
  - Cholestasis [Recovered/Resolved]

NARRATIVE: CASE EVENT DATE: 20220708
